FAERS Safety Report 6532046-1 (Version None)
Quarter: 2010Q1

REPORT INFORMATION
  Report Type: 
  Country: None (occurrence: None)
  Receive Date: 20100107
  Receipt Date: 20100107
  Transmission Date: 20100710
  Serious: Yes (Other)
  Sender: FDA-Public Use
  Company Number: None

PATIENT
  Age: 53 Year
  Sex: Female
  Weight: 79.3795 kg

DRUGS (2)
  1. CYMBALTA [Suspect]
     Indication: ANXIETY
     Dosage: 20 MG 1X/DAY PO
     Route: 048
     Dates: start: 20020115, end: 20091231
  2. CYMBALTA [Suspect]
     Indication: DEPRESSION
     Dosage: 20 MG 1X/DAY PO
     Route: 048
     Dates: start: 20020115, end: 20091231

REACTIONS (10)
  - DIARRHOEA [None]
  - DRUG WITHDRAWAL SYNDROME [None]
  - FEAR [None]
  - HEADACHE [None]
  - INSOMNIA [None]
  - LETHARGY [None]
  - NAUSEA [None]
  - PAIN [None]
  - VISUAL IMPAIRMENT [None]
  - WEIGHT INCREASED [None]
